FAERS Safety Report 8013120-X (Version None)
Quarter: 2011Q4

REPORT INFORMATION
  Report Type: 
  Country: None (occurrence: None)
  Receive Date: 20111229
  Receipt Date: 20111221
  Transmission Date: 20120403
  Serious: Yes (Death, Hospitalization)
  Sender: FDA-Public Use
  Company Number: US-JNJFOC-20111209330

PATIENT
  Sex: Female
  Weight: 69.4 kg

DRUGS (5)
  1. ENTOCORT EC [Concomitant]
     Indication: CROHN'S DISEASE
     Route: 048
  2. MARINOL [Concomitant]
     Indication: PAIN
     Route: 048
     Dates: end: 20070101
  3. PENTASA [Concomitant]
     Indication: CROHN'S DISEASE
     Route: 048
     Dates: end: 20090101
  4. REMICADE [Suspect]
     Indication: CROHN'S DISEASE
     Route: 042
     Dates: start: 20070101, end: 20080101
  5. OXYCODONE HCL [Concomitant]
     Indication: PAIN
     Route: 048

REACTIONS (7)
  - SEPTIC SHOCK [None]
  - RENAL FAILURE CHRONIC [None]
  - MALAISE [None]
  - CROHN'S DISEASE [None]
  - HYPOTENSION [None]
  - DEVICE RELATED INFECTION [None]
  - PYREXIA [None]
